FAERS Safety Report 12812627 (Version 1)
Quarter: 2016Q4

REPORT INFORMATION
  Report Type: Spontaneous
  Country: US (occurrence: US)
  Receive Date: 20161005
  Receipt Date: 20161005
  Transmission Date: 20170207
  Serious: No
  Sender: FDA-Public Use
  Company Number: US-TAIHO ONCOLOGY INC-EU-2016-02427

PATIENT
  Age: 79 Year
  Sex: Male

DRUGS (5)
  1. DOCUSATE [Concomitant]
     Active Substance: DOCUSATE
     Dosage: NI
  2. WARFARIN [Concomitant]
     Active Substance: WARFARIN
     Dosage: NI
  3. CEFALEXIN [Concomitant]
     Active Substance: CEPHALEXIN
     Dosage: NI
  4. ATROPINE SULFATE/DIPHENOXYLATE HYDROCHLORIDE [Concomitant]
     Dosage: NI
  5. LONSURF [Suspect]
     Active Substance: TIPIRACIL HYDROCHLORIDE\TRIFLURIDINE
     Indication: COLON CANCER
     Route: 048
     Dates: start: 20160815, end: 20160915

REACTIONS (3)
  - Depression [Unknown]
  - Asthenia [Unknown]
  - Fatigue [Unknown]

NARRATIVE: CASE EVENT DATE: 20160826
